FAERS Safety Report 5108072-6 (Version None)
Quarter: 2006Q3

REPORT INFORMATION
  Report Type: 
  Country: None (occurrence: None)
  Receive Date: 20060915
  Receipt Date: 20060906
  Transmission Date: 20061208
  Serious: Yes (Hospitalization)
  Sender: FDA-Public Use
  Company Number: 2006BI012696

PATIENT
  Age: 57 Year

DRUGS (1)
  1. AVONEX [Suspect]
     Indication: MULTIPLE SCLEROSIS
     Dosage: 30 UG:QW;IM
     Dates: start: 20011029, end: 20060808

REACTIONS (2)
  - PNEUMONIA [None]
  - VIRAL INFECTION [None]
